FAERS Safety Report 15579913 (Version 16)
Quarter: 2022Q3

REPORT INFORMATION
  Report Type: Report from Study
  Country: MX (occurrence: None)
  Receive Date: 20181102
  Receipt Date: 20220726
  Transmission Date: 20221027
  Serious: Yes (Hospitalization)
  Sender: FDA-Public Use
  Company Number: MX-ROCHE-2207921

PATIENT
  Age: 57 Year
  Sex: Female
  Weight: 73 kg

DRUGS (4)
  1. ATEZOLIZUMAB [Suspect]
     Active Substance: ATEZOLIZUMAB
     Indication: Triple negative breast cancer
     Dosage: DATE OF MOST RECENT DOSE OF ATEZOLIZUMAB PRIOR TO SAE ONSET: 22/OCT/2018.
     Route: 041
     Dates: start: 20180413
  2. CARBOPLATIN [Suspect]
     Active Substance: CARBOPLATIN
     Indication: Triple negative breast cancer
     Dosage: DOSE: AT TARGET AREA UNDER THE CURVE (AUC) 2 MG/ML/MIN.?DATE OF MOST RECENT DOSE OF CARBOPLATIN PRIO
     Route: 042
     Dates: start: 20180413
  3. GEMCITABINE [Suspect]
     Active Substance: GEMCITABINE
     Indication: Triple negative breast cancer
     Dosage: DATE OF MOST RECENT DOSE OF GEMCITABINE PRIOR TO SAE ONSET: 22/OCT/2018 (1740 MG/M^2).?FREQUENCY OF
     Route: 042
     Dates: start: 20180413
  4. AMLODIPINE BESYLATE [Concomitant]
     Active Substance: AMLODIPINE BESYLATE
     Dates: start: 20100101

REACTIONS (1)
  - Thrombocytopenia [Recovered/Resolved]

NARRATIVE: CASE EVENT DATE: 20181028
